FAERS Safety Report 7383010-4 (Version None)
Quarter: 2011Q1

REPORT INFORMATION
  Report Type: 
  Country: None (occurrence: None)
  Receive Date: 20110330
  Receipt Date: 20110324
  Transmission Date: 20110831
  Serious: No
  Sender: FDA-Public Use
  Company Number: US-PFIZER INC-2011067473

PATIENT
  Age: 38 Year
  Sex: Male

DRUGS (7)
  1. CRESTOR [Concomitant]
     Indication: BLOOD PRESSURE ABNORMAL
     Dosage: 5 MG, 1X/DAY
     Route: 048
  2. LANTUS [Concomitant]
     Indication: DIABETES MELLITUS
     Dosage: 50 IU, 1X/DAY
  3. COZAAR [Concomitant]
     Dosage: 25 MG, 1X/DAY
     Route: 048
  4. HYDROCHLOROTHIAZIDE [Concomitant]
     Dosage: 12.5 MG, UNK
     Route: 048
  5. JANUVIA [Concomitant]
     Dosage: 25 MG, UNK
     Route: 048
  6. LYRICA [Suspect]
     Indication: DIABETIC NEUROPATHY
     Dosage: 100 MG, 2X/DAY
     Route: 048
     Dates: start: 20110301, end: 20110301
  7. NOVOLOG [Concomitant]
     Dosage: UNK

REACTIONS (2)
  - SCREAMING [None]
  - IRRITABILITY [None]
